FAERS Safety Report 18160984 (Version 1)
Quarter: 2020Q3

REPORT INFORMATION
  Report Type: Spontaneous
  Country: GB (occurrence: GB)
  Receive Date: 20200817
  Receipt Date: 20200817
  Transmission Date: 20201103
  Serious: Yes (Other)
  Sender: FDA-Public Use
  Company Number: GB-DEXPHARM-20200702

PATIENT
  Age: 33 Year
  Sex: Male
  Weight: 82 kg

DRUGS (7)
  1. PARACETAMOL [Concomitant]
     Active Substance: ACETAMINOPHEN
  2. CAPIMUNE [Interacting]
     Active Substance: CYCLOSPORINE
     Indication: ECZEMA
     Route: 048
  3. VENLAFAXINE [Interacting]
     Active Substance: VENLAFAXINE HYDROCHLORIDE
     Indication: DEPRESSION
     Route: 048
  4. FLUCLOXACILLIN SODIUM [Concomitant]
     Active Substance: FLUCLOXACILLIN SODIUM
  5. IBUPROFEN. [Concomitant]
     Active Substance: IBUPROFEN
  6. ESCITALOPRAM OXALATE. [Suspect]
     Active Substance: ESCITALOPRAM OXALATE
     Indication: MAJOR DEPRESSION
     Route: 048
  7. CAPIMUNE [Interacting]
     Active Substance: CYCLOSPORINE
     Indication: ECZEMA
     Dosage: TITRATED UP TO 200 MG TWICE DAILY AT MAXIMUM DOSE.
     Route: 048
     Dates: start: 20200108, end: 20200714

REACTIONS (1)
  - Inhibitory drug interaction [Unknown]

NARRATIVE: CASE EVENT DATE: 20200108
